FAERS Safety Report 16033934 (Version 2)
Quarter: 2019Q1

REPORT INFORMATION
  Report Type: Spontaneous
  Country: US (occurrence: US)
  Receive Date: 20190305
  Receipt Date: 20190311
  Transmission Date: 20190418
  Serious: Yes (Other)
  Sender: FDA-Public Use
  Company Number: US-TAKEDA-2019TUS010836

PATIENT
  Sex: Female
  Weight: 62.1 kg

DRUGS (7)
  1. DEXAMETHASONE. [Suspect]
     Active Substance: DEXAMETHASONE
     Indication: AMYLOIDOSIS
     Route: 065
  2. CYCLOPHOSPHAMIDE. [Suspect]
     Active Substance: CYCLOPHOSPHAMIDE
     Indication: AMYLOIDOSIS
     Dosage: UNK
     Route: 065
  3. ATOVAQUONE. [Concomitant]
     Active Substance: ATOVAQUONE
     Indication: PROPHYLAXIS
     Dosage: 750 MILLIGRAM
     Route: 048
     Dates: start: 20190206
  4. ACETAMINOPHEN. [Concomitant]
     Active Substance: ACETAMINOPHEN
     Indication: PAIN
     Dosage: 975 MILLIGRAM
     Route: 048
     Dates: start: 20190206
  5. ACYCLOVIR                          /00587301/ [Concomitant]
     Active Substance: ACYCLOVIR
     Indication: PROPHYLAXIS
     Dosage: 400 MILLIGRAM
     Route: 048
     Dates: start: 20190206
  6. VELCADE [Suspect]
     Active Substance: BORTEZOMIB
     Indication: AMYLOIDOSIS
     Route: 065
  7. BENADRYL [Concomitant]
     Active Substance: DIPHENHYDRAMINE HYDROCHLORIDE
     Indication: ANTIALLERGIC THERAPY
     Dosage: 25 MILLIGRAM
     Route: 042
     Dates: start: 20190206

REACTIONS (2)
  - Therapy partial responder [Unknown]
  - Amyloidosis [Unknown]
